FAERS Safety Report 4750834-9 (Version None)
Quarter: 2005Q3

REPORT INFORMATION
  Report Type: 
  Country: None (occurrence: None)
  Receive Date: 20050822
  Receipt Date: 20050811
  Transmission Date: 20060218
  Serious: Yes (Hospitalization)
  Sender: FDA-Public Use
  Company Number: NM-AE-05-002

PATIENT
  Age: 67 Year
  Sex: Male

DRUGS (8)
  1. BIDIL [Suspect]
     Indication: CARDIAC FAILURE
     Dosage: 1 TABLET - BID - ORAL
     Route: 048
     Dates: start: 20050805, end: 20050809
  2. CADUET TABLET [Concomitant]
  3. CATAPRESS #3 PATCH [Concomitant]
  4. PLAVIX [Concomitant]
  5. DIOVAN HCT TABLET [Concomitant]
  6. COREG TABLET [Concomitant]
  7. TRICOR TABLET [Concomitant]
  8. LOTREL TABLET [Concomitant]

REACTIONS (3)
  - ABDOMINAL DISCOMFORT [None]
  - CORONARY ARTERY OCCLUSION [None]
  - OEDEMA PERIPHERAL [None]
